FAERS Safety Report 4600598-4 (Version None)
Quarter: 2005Q1

REPORT INFORMATION
  Report Type: 
  Country: None (occurrence: None)
  Receive Date: 20050304
  Receipt Date: 20050223
  Transmission Date: 20050727
  Serious: Yes (Hospitalization, Other)
  Sender: FDA-Public Use
  Company Number: 2005015168

PATIENT
  Age: 11 Year
  Sex: Female
  Weight: 46 kg

DRUGS (1)
  1. GENOTROPIN [Suspect]
     Indication: HYPOPITUITARISM
     Dosage: 1.6 MG (1.6 MG, 1 IN 1 D), SUBCUTANEOUS
     Route: 058
     Dates: start: 20030415, end: 20050126

REACTIONS (2)
  - INJECTION SITE ABSCESS [None]
  - PHARMACEUTICAL PRODUCT COMPLAINT [None]
